FAERS Safety Report 14565762 (Version 4)
Quarter: 2021Q4

REPORT INFORMATION
  Report Type: Spontaneous
  Country: US (occurrence: US)
  Receive Date: 20180223
  Receipt Date: 20211025
  Transmission Date: 20220303
  Serious: Yes (Death, Hospitalization, Other)
  Sender: FDA-Public Use
  Company Number: US-TEVA-2018-US-860515

PATIENT
  Age: 48 Year
  Sex: Male

DRUGS (86)
  1. FENTORA [Suspect]
     Active Substance: FENTANYL CITRATE
     Indication: Pain
     Dosage: 4 DOSAGE FORMS DAILY;
     Route: 002
     Dates: start: 20141106, end: 20150129
  2. FENTANYL [Suspect]
     Active Substance: FENTANYL
     Indication: Pain
     Dosage: FROM 2010 THROUGH 2017 TIME PERIOD
     Route: 002
  3. ACETAMINOPHEN\HYDROCODONE BITARTRATE [Suspect]
     Active Substance: ACETAMINOPHEN\HYDROCODONE BITARTRATE
     Indication: Pain
     Dosage: 3 DOSAGE FORMS DAILY; 7.5/325MG, IN 2015 AND 2017
     Route: 048
  4. ACETAMINOPHEN\HYDROCODONE BITARTRATE [Suspect]
     Active Substance: ACETAMINOPHEN\HYDROCODONE BITARTRATE
     Dosage: 4 DOSAGE FORMS DAILY; 7.5/325MG , PRN FOR PAIN
     Route: 048
  5. OXYCODONE HYDROCHLORIDE [Suspect]
     Active Substance: OXYCODONE HYDROCHLORIDE
     Indication: Pain
     Dosage: 4 DOSAGE FORMS DAILY; IN 2014 AND 2015
     Route: 048
  6. OXYCODONE HYDROCHLORIDE [Suspect]
     Active Substance: OXYCODONE HYDROCHLORIDE
     Dosage: 3 DOSAGE FORMS DAILY; IN -2013
     Route: 048
  7. ACETAMINOPHEN\OXYCODONE HYDROCHLORIDE [Suspect]
     Active Substance: ACETAMINOPHEN\OXYCODONE HYDROCHLORIDE
     Indication: Pain
     Dosage: 10-325MG , 1 TAB EVERY 6 TO 8 HOURS,  IN 2010 AND 2012
     Route: 048
  8. ACETAMINOPHEN\OXYCODONE HYDROCHLORIDE [Suspect]
     Active Substance: ACETAMINOPHEN\OXYCODONE HYDROCHLORIDE
     Dosage: 10-325MG, IN -2014
     Route: 048
  9. MORPHINE SULFATE [Suspect]
     Active Substance: MORPHINE SULFATE
     Indication: Pain
     Dosage: IN -2010 AND -2011
     Route: 048
  10. MORPHINE SULFATE [Suspect]
     Active Substance: MORPHINE SULFATE
     Dosage: IN -2011
     Route: 048
  11. ACETAMINOPHEN\OXYCODONE HYDROCHLORIDE [Suspect]
     Active Substance: ACETAMINOPHEN\OXYCODONE HYDROCHLORIDE
     Indication: Pain
     Dosage: 10-325 MG TAB, Q4-6 HOUR PRN, IN 2012 AND 2013
     Route: 048
  12. ACETAMINOPHEN\OXYCODONE HYDROCHLORIDE [Suspect]
     Active Substance: ACETAMINOPHEN\OXYCODONE HYDROCHLORIDE
     Dosage: 10MG/325MG, 1 TAB EVERY 12-24HRS, IN -2010
     Route: 048
  13. MORPHINE SULFATE [Suspect]
     Active Substance: MORPHINE SULFATE
     Indication: Pain
     Dosage: FROM 2010 THROUGH 2017 TIME PERIOD
     Route: 065
  14. OPANA [Suspect]
     Active Substance: OXYMORPHONE HYDROCHLORIDE
     Indication: Pain
     Dosage: FROM 2010 THROUGH 2017 TIME PERIOD
     Route: 065
  15. OXYCODONE [Suspect]
     Active Substance: OXYCODONE
     Indication: Pain
     Dosage: FROM 2010 THROUGH 2017 TIME PERIOD?OXYCODONE PURDUE
     Route: 065
  16. ABSTRAL [Suspect]
     Active Substance: FENTANYL CITRATE
     Indication: Pain
     Route: 060
  17. TRAMADOL HYDROCHLORIDE [Suspect]
     Active Substance: TRAMADOL HYDROCHLORIDE
     Indication: Pain
     Dosage: IN -2008
     Route: 048
  18. TRAMADOL HYDROCHLORIDE [Suspect]
     Active Substance: TRAMADOL HYDROCHLORIDE
     Dosage: IN -2008
     Route: 048
  19. COMBUNOX [Suspect]
     Active Substance: IBUPROFEN\OXYCODONE HYDROCHLORIDE
     Indication: Pain
     Dosage: 5-400MG
     Route: 048
  20. HOMATROPINE METHYLBROMIDE\HYDROCODONE BITARTRATE [Suspect]
     Active Substance: HOMATROPINE METHYLBROMIDE\HYDROCODONE BITARTRATE
     Indication: Pain
     Dosage: IN -2013
  21. HOMATROPINE METHYLBROMIDE\HYDROCODONE BITARTRATE [Suspect]
     Active Substance: HOMATROPINE METHYLBROMIDE\HYDROCODONE BITARTRATE
     Indication: Pain
     Dosage: IN -2009
  22. ACETAMINOPHEN\OXYCODONE HYDROCHLORIDE [Suspect]
     Active Substance: ACETAMINOPHEN\OXYCODONE HYDROCHLORIDE
     Indication: Pain
     Dosage: IN -2010
     Route: 048
  23. OXYCODONE HYDROCHLORIDE [Suspect]
     Active Substance: OXYCODONE HYDROCHLORIDE
     Indication: Pain
     Dosage: IN -2016
     Route: 048
  24. DILAUDID [Suspect]
     Active Substance: HYDROMORPHONE HYDROCHLORIDE
     Indication: Pain
     Route: 065
  25. NORCO [Suspect]
     Active Substance: ACETAMINOPHEN\HYDROCODONE BITARTRATE
     Indication: Pain
     Dosage: IN -OCT-2010
     Route: 065
  26. KADIAN [Suspect]
     Active Substance: MORPHINE SULFATE
     Indication: Pain
     Route: 065
  27. MORPHINE SULFATE [Suspect]
     Active Substance: MORPHINE SULFATE
     Indication: Pain
     Dosage: 3 DOSAGE FORMS DAILY; PRN, IN -2013 AND -2014?MORPHINE SULFATE MYLAN
     Route: 048
  28. OXYCONTIN [Suspect]
     Active Substance: OXYCODONE HYDROCHLORIDE
     Indication: Pain
     Dosage: IN -2015, CONTROLLED RELEASE TABLET
     Route: 048
  29. OXYCONTIN [Suspect]
     Active Substance: OXYCODONE HYDROCHLORIDE
     Dosage: IN -2011
     Route: 048
  30. OXYCONTIN [Suspect]
     Active Substance: OXYCODONE HYDROCHLORIDE
     Dosage: EXTENDED RELEASE TABLET
     Route: 048
     Dates: start: 20130625, end: 20131014
  31. OXYCONTIN [Suspect]
     Active Substance: OXYCODONE HYDROCHLORIDE
     Dosage: 2 DOSAGE FORMS DAILY; IN -2015, EXTENDED RELEASE TABLET
     Route: 048
  32. OXYCODONE HYDROCHLORIDE [Suspect]
     Active Substance: OXYCODONE HYDROCHLORIDE
     Indication: Pain
     Dosage: 4 DOSAGE FORMS DAILY;
     Route: 048
  33. MS CONTIN [Suspect]
     Active Substance: MORPHINE SULFATE
     Indication: Pain
     Dosage: 3 DOSAGE FORMS DAILY;  DISCONTINUED BY PATIENT MEDICATION INTOLERANCE
     Route: 048
     Dates: start: 20131024, end: 20140620
  34. MS CONTIN [Suspect]
     Active Substance: MORPHINE SULFATE
     Dosage: 3 DOSAGE FORMS DAILY;
     Route: 048
     Dates: start: 20140522, end: 20150423
  35. MORPHINE SULFATE [Suspect]
     Active Substance: MORPHINE SULFATE
     Indication: Pain
     Dosage: 90 MILLIGRAM DAILY;
     Route: 048
  36. MORPHINE SULFATE [Suspect]
     Active Substance: MORPHINE SULFATE
     Dosage: 120 MILLIGRAM DAILY; DISCONTINUED BY PATIENT MEDICATION INTOLERANCE
     Route: 048
     Dates: start: 20131014, end: 20140620
  37. METHADONE HYDROCHLORIDE [Suspect]
     Active Substance: METHADONE HYDROCHLORIDE
     Indication: Pain
     Route: 065
  38. OXYCODONE HYDROCHLORIDE [Suspect]
     Active Substance: OXYCODONE HYDROCHLORIDE
     Indication: Pain
     Dosage: IN -2016?OXYCODONE HYDROCHLORIDE KVK TECH
     Route: 048
  39. OXYCODONE [Suspect]
     Active Substance: OXYCODONE
     Indication: Pain
     Dosage: 2 DOSAGE FORMS DAILY; IN 2015, 2016 AND 2017?OXYCODONE IR KVK TECH
     Route: 048
  40. OXYCODONE [Suspect]
     Active Substance: OXYCODONE
     Dosage: 4 DOSAGE FORMS DAILY; IN -2014
     Route: 048
  41. MORPHINE SULFATE [Suspect]
     Active Substance: MORPHINE SULFATE
     Indication: Pain
     Dosage: 2 DOSAGE FORMS DAILY; PRN, IN -2015?MORPHINE SULFATE ER ZYDUS
     Route: 048
  42. MORPHINE SULFATE [Suspect]
     Active Substance: MORPHINE SULFATE
     Dosage: 2 DOSAGE FORMS DAILY; IN 2015, 2016 AND 2017
     Route: 048
  43. MORPHINE SULFATE [Suspect]
     Active Substance: MORPHINE SULFATE
     Indication: Pain
     Dosage: FROM 2010 THROUGH 2017 TIME PERIOD?MORPHINE SULFATE ER NESHER
     Route: 065
  44. ACETAMINOPHEN\OXYCODONE HYDROCHLORIDE [Suspect]
     Active Substance: ACETAMINOPHEN\OXYCODONE HYDROCHLORIDE
     Indication: Pain
     Dosage: IN -2010
     Route: 065
  45. MORPHINE SULFATE [Suspect]
     Active Substance: MORPHINE SULFATE
     Indication: Pain
     Dosage: 2 DOSAGE FORMS DAILY; IN -2010, ER TABLET?MORPHINE SULFATE MALLINCKRODT
     Route: 048
  46. MORPHINE SULFATE [Suspect]
     Active Substance: MORPHINE SULFATE
     Dosage: 3 DOSAGE FORMS DAILY; IN -2012, 2013 AND -2014. ER TABLET
     Route: 048
  47. MORPHINE SULFATE [Suspect]
     Active Substance: MORPHINE SULFATE
     Dosage: IN -2011. ER TABLET
     Route: 048
  48. MORPHINE SULFATE [Suspect]
     Active Substance: MORPHINE SULFATE
     Dosage: IN 2011 AND -2013. ER TABLET
     Route: 048
  49. MORPHINE SULFATE [Suspect]
     Active Substance: MORPHINE SULFATE
     Dosage: 3 DOSAGE FORMS DAILY; IN -2013, IR TABLET
     Route: 048
  50. OXYCODONE HYDROCHLORIDE [Suspect]
     Active Substance: OXYCODONE HYDROCHLORIDE
     Indication: Pain
     Dosage: FROM 2010 THROUGH 2017 TIME PERIOD?OXYCODONE HYDROCHLORIDE MALLINCKRODT
     Route: 065
  51. ROXICODONE [Suspect]
     Active Substance: OXYCODONE HYDROCHLORIDE
     Indication: Pain
     Dosage: 4 DOSAGE FORMS DAILY;
     Route: 048
     Dates: start: 20140522, end: 20150423
  52. METHADONE HYDROCHLORIDE [Suspect]
     Active Substance: METHADONE HYDROCHLORIDE
     Indication: Pain
     Dosage: 8 DOSAGE FORMS DAILY; IN -2010
     Route: 048
  53. MORPHINE SULFATE [Suspect]
     Active Substance: MORPHINE SULFATE
     Indication: Pain
     Dosage: IN 2011?MORPHINE SULFATE ER ENDO
     Route: 048
  54. MORPHINE SULFATE [Suspect]
     Active Substance: MORPHINE SULFATE
     Dosage: 2 DOSAGE FORMS DAILY;
     Route: 048
  55. MORPHINE SULFATE [Suspect]
     Active Substance: MORPHINE SULFATE
     Dosage: 3 DOSAGE FORMS DAILY; IN -2015
     Route: 048
  56. PERCOCET [Suspect]
     Active Substance: ACETAMINOPHEN\OXYCODONE HYDROCHLORIDE
     Indication: Pain
     Dosage: 4 DOSAGE FORMS DAILY; 10-325 MG
     Route: 048
     Dates: start: 20110525, end: 20131014
  57. AVINZA [Suspect]
     Active Substance: MORPHINE SULFATE
     Indication: Pain
     Dosage: 60 MILLIGRAM DAILY; FROM 2010 THROUGH 2017 TIME PERIOD?AVINZA SR
     Route: 048
  58. MORPHINE SULFATE [Suspect]
     Active Substance: MORPHINE SULFATE
     Indication: Pain
     Dosage: IN 2012, 2013 AND 2014?MORPHINE SULFATE ER RHODES
     Route: 048
  59. MORPHINE SULFATE [Suspect]
     Active Substance: MORPHINE SULFATE
     Indication: Pain
     Dosage: 1 DOSAGE FORMS DAILY; IN -2011, -2015 AND -2016?MORPHINE SULFATE IR ROXANE
     Route: 048
  60. MORPHINE SULFATE [Suspect]
     Active Substance: MORPHINE SULFATE
     Dosage: 4 DOSAGE FORMS DAILY; IN -2012, -2013 AND -2014.
     Route: 048
  61. METHADONE HYDROCHLORIDE [Suspect]
     Active Substance: METHADONE HYDROCHLORIDE
     Indication: Pain
     Dosage: 3 DOSAGE FORMS DAILY; IN -2008, -2009 AND -2010
     Route: 048
  62. METHADONE HYDROCHLORIDE [Suspect]
     Active Substance: METHADONE HYDROCHLORIDE
     Dosage: IN -2009, 1 TO 1 1/2 TAB Q5H
     Route: 048
  63. METHADONE HYDROCHLORIDE [Suspect]
     Active Substance: METHADONE HYDROCHLORIDE
     Dosage: 6 DOSAGE FORMS DAILY; IN -2010, MAX OF 8 TABS PER DAY
     Route: 048
  64. METHADONE HYDROCHLORIDE [Suspect]
     Active Substance: METHADONE HYDROCHLORIDE
     Dosage: IN -2009
     Route: 048
  65. ACETAMINOPHEN\HYDROCODONE BITARTRATE [Suspect]
     Active Substance: ACETAMINOPHEN\HYDROCODONE BITARTRATE
     Indication: Pain
     Dosage: 5/500 MG, IN 2007 AND 2008
     Route: 048
  66. ACETAMINOPHEN\HYDROCODONE BITARTRATE [Suspect]
     Active Substance: ACETAMINOPHEN\HYDROCODONE BITARTRATE
     Dosage: IN 2007 AND 2008
     Route: 048
  67. ACETAMINOPHEN\HYDROCODONE BITARTRATE [Suspect]
     Active Substance: ACETAMINOPHEN\HYDROCODONE BITARTRATE
     Dosage: IN -2011
     Route: 048
  68. ACETAMINOPHEN\HYDROCODONE BITARTRATE [Suspect]
     Active Substance: ACETAMINOPHEN\HYDROCODONE BITARTRATE
     Dosage: 7.5-325 MG, IN 2017
     Route: 048
  69. ACETAMINOPHEN\HYDROCODONE BITARTRATE [Suspect]
     Active Substance: ACETAMINOPHEN\HYDROCODONE BITARTRATE
     Dosage: 10/650 MG, IN -2007 AND 2009
     Route: 065
  70. ACETAMINOPHEN\HYDROCODONE BITARTRATE [Suspect]
     Active Substance: ACETAMINOPHEN\HYDROCODONE BITARTRATE
     Dosage: 10/500 MG, FROM 2004 THROUGH 2009 TIME PERIOD
     Route: 065
  71. ACETAMINOPHEN\HYDROCODONE BITARTRATE [Suspect]
     Active Substance: ACETAMINOPHEN\HYDROCODONE BITARTRATE
     Dosage: 7.5/500 MG, IN 2007, 2008 AND  2009
     Route: 065
  72. ACETAMINOPHEN\HYDROCODONE BITARTRATE [Suspect]
     Active Substance: ACETAMINOPHEN\HYDROCODONE BITARTRATE
     Dosage: IN -2008
     Route: 065
  73. OXYCODONE HYDROCHLORIDE [Suspect]
     Active Substance: OXYCODONE HYDROCHLORIDE
     Indication: Pain
     Dosage: IN -2014?OXYCODONE HYDROCHLORIDE PAR
     Route: 048
  74. ENDOCET [Suspect]
     Active Substance: ACETAMINOPHEN\OXYCODONE HYDROCHLORIDE
     Indication: Pain
     Dosage: 4 DOSAGE FORMS DAILY; 5-325 MG , IN -2008
     Route: 048
  75. ENDOCET [Suspect]
     Active Substance: ACETAMINOPHEN\OXYCODONE HYDROCHLORIDE
     Dosage: 4 DOSAGE FORMS DAILY; 10-325 MG, IN -2009 AND 2010
     Route: 048
  76. MORPHINE SULFATE [Suspect]
     Active Substance: MORPHINE SULFATE
     Indication: Pain
     Dosage: IN 2011, 2012, 2013 AND 2014?MORPHINE SULFATE IR WEST WARD
     Route: 048
  77. DOXYCYCLINE HYCLATE [Concomitant]
     Active Substance: DOXYCYCLINE HYCLATE
     Dosage: 2 DOSAGE FORMS DAILY;
     Route: 048
  78. GUAIFENESIN [Concomitant]
     Active Substance: GUAIFENESIN
     Dosage: 4 DOSAGE FORMS DAILY;
     Route: 048
  79. GABAPENTIN [Concomitant]
     Active Substance: GABAPENTIN
     Dosage: 4 DOSAGE FORMS DAILY;
     Route: 048
  80. ALBUTEROL [Concomitant]
     Active Substance: ALBUTEROL
     Dosage: 90 MCG/ACTUATION INHALER, INHALE 1-2 PUFFS BY MOUTH EVERY 4 HOURS AS NEEDED
  81. ONDANSETRON [Concomitant]
     Active Substance: ONDANSETRON
     Dosage: 3 DOSAGE FORMS DAILY;
     Route: 048
  82. LISINOPRIL [Concomitant]
     Active Substance: LISINOPRIL
     Dosage: 1 DOSAGE FORMS DAILY;
     Route: 048
  83. FENOFIBRATE [Concomitant]
     Active Substance: FENOFIBRATE
     Dosage: 1 DOSAGE FORMS DAILY;
     Route: 048
  84. ATORVASTATIN [Concomitant]
     Active Substance: ATORVASTATIN
     Dosage: 1 DOSAGE FORMS DAILY;
     Route: 048
  85. NYSTATIN [Concomitant]
     Active Substance: NYSTATIN
     Dosage: 100,000 UNIT/GRAM POWDER, APPLY TO AFFECTED AREA TID
  86. ZOLPIDEM [Concomitant]
     Active Substance: ZOLPIDEM TARTRATE
     Route: 048

REACTIONS (28)
  - Completed suicide [Fatal]
  - Suicidal ideation [Unknown]
  - Sleep apnoea syndrome [Unknown]
  - Withdrawal syndrome [Unknown]
  - Weight increased [Unknown]
  - Carotid artery stenosis [Unknown]
  - Hepatotoxicity [Unknown]
  - Hallucination [Unknown]
  - Drug dependence [Unknown]
  - Chronic obstructive pulmonary disease [Unknown]
  - Dyspnoea [Unknown]
  - Asthma [Unknown]
  - Anxiety [Unknown]
  - Depression [Unknown]
  - Product use in unapproved indication [Unknown]
  - Hyperhidrosis [Unknown]
  - Heart rate increased [Unknown]
  - Pain [Unknown]
  - Impulse-control disorder [Unknown]
  - Feeling abnormal [Unknown]
  - Fatigue [Unknown]
  - Sedation [Unknown]
  - Product prescribing issue [Unknown]
  - Malaise [Unknown]
  - Constipation [Unknown]
  - Nausea [Unknown]
  - Drug intolerance [Unknown]
  - Patient dissatisfaction with treatment [Unknown]

NARRATIVE: CASE EVENT DATE: 20090101
